FAERS Safety Report 8047301-6 (Version None)
Quarter: 2012Q1

REPORT INFORMATION
  Report Type: 
  Country: None (occurrence: None)
  Receive Date: 20120116
  Receipt Date: 20120111
  Transmission Date: 20120608
  Serious: Yes (Other)
  Sender: FDA-Public Use
  Company Number: US-BAYER-2011-114532

PATIENT
  Age: 37 Year
  Sex: Female
  Weight: 87.075 kg

DRUGS (10)
  1. TOPROL-XL [Concomitant]
     Indication: HYPERTENSION
     Dosage: 25 MG, UNK
     Dates: end: 20111101
  2. ORTHO NOVUM 0.5/50 21 TAB [Concomitant]
     Dosage: UNK
     Dates: end: 20100801
  3. TOPROL-XL [Concomitant]
     Dosage: 50 MG, UNK
     Dates: start: 20111101
  4. NASONEX [Concomitant]
     Dosage: 50 ?G, UNK
  5. ALBUTEROL [Concomitant]
     Dosage: 90 ?G, UNK
  6. MIRENA [Suspect]
     Indication: CONTRACEPTION
     Dosage: 20 MCG/24HR, CONT
     Route: 015
     Dates: start: 20100824
  7. ATENOLOL [Concomitant]
     Indication: HYPERTENSION
     Dosage: 25 MG, QD
  8. PREDNISONE [Concomitant]
     Dosage: 20 MG, BID
  9. FLONASE [Concomitant]
     Dosage: 50 ?G, BID
  10. ASTEPRO [Concomitant]
     Dosage: 2 PUFF(S), QD

REACTIONS (3)
  - VENTRICULAR EXTRASYSTOLES [None]
  - DIZZINESS [None]
  - DYSPNOEA [None]
